FAERS Safety Report 7404866-2 (Version None)
Quarter: 2011Q2

REPORT INFORMATION
  Report Type: 
  Country: None (occurrence: None)
  Receive Date: 20110411
  Receipt Date: 20110329
  Transmission Date: 20111010
  Serious: Yes (Hospitalization)
  Sender: FDA-Public Use
  Company Number: BR-JNJFOC-20110401858

PATIENT
  Sex: Female
  Weight: 69 kg

DRUGS (11)
  1. CARVEDILOL [Concomitant]
     Indication: PRODUCT USED FOR UNKNOWN INDICATION
     Route: 065
  2. HALOPERIDOL [Suspect]
     Indication: PRODUCT USED FOR UNKNOWN INDICATION
     Route: 065
  3. SIMVASTATIN [Concomitant]
     Indication: CARDIOVASCULAR DISORDER
     Dosage: 1 TABLET IN THE  MORNING
     Route: 065
  4. CLORANA [Concomitant]
     Indication: BLOOD PRESSURE
     Route: 065
  5. CITALOPRAM [Concomitant]
     Indication: SLEEP DISORDER THERAPY
     Dosage: 20MG AT NIGHT
     Route: 065
  6. OMEPRAZOLE [Concomitant]
     Indication: GASTRIC DISORDER
     Route: 065
  7. SEROQUEL [Concomitant]
     Indication: SLEEP DISORDER THERAPY
     Dosage: 2 TABLETS AT NIGHT
     Route: 065
  8. SIMVASTATIN [Concomitant]
     Indication: BLOOD CHOLESTEROL
     Dosage: 1 TABLET IN THE  MORNING
     Route: 065
  9. ACETYLSALICYLIC ACID SRT [Concomitant]
     Indication: PRODUCT USED FOR UNKNOWN INDICATION
     Route: 065
  10. RIVOTRIL [Suspect]
     Indication: LABYRINTHITIS
     Route: 065
  11. RIVOTRIL [Suspect]
     Indication: SLEEP DISORDER THERAPY
     Route: 065

REACTIONS (2)
  - FALL [None]
  - DIZZINESS [None]
